FAERS Safety Report 7654667-5 (Version None)
Quarter: 2011Q3

REPORT INFORMATION
  Report Type: 
  Country: None (occurrence: None)
  Receive Date: 20110804
  Receipt Date: 20110722
  Transmission Date: 20111222
  Serious: Yes (Other)
  Sender: FDA-Public Use
  Company Number: AU-BIOGENIDEC-2011BI023120

PATIENT
  Age: 47 Year
  Sex: Female

DRUGS (8)
  1. TRAMADOL HCL [Concomitant]
  2. BACLOFEN [Concomitant]
  3. BACLOFEN [Concomitant]
  4. AMITRIPTYLINE HCL [Concomitant]
  5. MELOXICAM [Concomitant]
  6. BACLOFEN [Concomitant]
  7. PERINDOPRIL [Concomitant]
  8. TYSABRI [Suspect]
     Indication: PROGRESSIVE MULTIPLE SCLEROSIS
     Route: 042
     Dates: start: 20090423

REACTIONS (2)
  - PROGRESSIVE MULTIFOCAL LEUKOENCEPHALOPATHY [None]
  - PETIT MAL EPILEPSY [None]
